FAERS Safety Report 4401198-1 (Version None)
Quarter: 2004Q3

REPORT INFORMATION
  Report Type: 
  Country: None (occurrence: None)
  Receive Date: 20040907
  Receipt Date: 20031216
  Transmission Date: 20050211
  Serious: Yes (Hospitalization)
  Sender: FDA-Public Use
  Company Number: US-BRISTOL-MYERS SQUIBB COMPANY-12459137

PATIENT
  Age: 66 Year
  Sex: Female
  Weight: 76 kg

DRUGS (3)
  1. COUMADIN [Suspect]
     Indication: THROMBOSIS
     Dosage: DOSE VARIED, DEPENDENT ON INRS; PRESENT DOSE 5MG/D.
     Route: 048
     Dates: start: 19830101
  2. ACCUPRIL [Concomitant]
     Dosage: ^FOR A GOOD WHILE^
  3. LASIX [Concomitant]

REACTIONS (4)
  - ALOPECIA [None]
  - CONTUSION [None]
  - PULMONARY THROMBOSIS [None]
  - THROMBOSIS [None]
